FAERS Safety Report 5217855-3 (Version None)
Quarter: 2007Q1

REPORT INFORMATION
  Report Type: 
  Country: None (occurrence: None)
  Receive Date: 20070124
  Receipt Date: 20070109
  Transmission Date: 20070707
  Serious: Yes (Other)
  Sender: FDA-Public Use
  Company Number: US-SHR-US-2006-026628

PATIENT
  Age: 49 Year
  Sex: Male
  Weight: 76.19 kg

DRUGS (6)
  1. BETASERON [Suspect]
     Indication: RELAPSING-REMITTING MULTIPLE SCLEROSIS
     Dosage: 8 MIU, EVERY 2D
     Route: 058
     Dates: start: 20040220, end: 20061207
  2. EFFEXOR [Concomitant]
  3. EFFEXOR [Concomitant]
     Dosage: 37.5 MG, 1X/DAY
     Dates: start: 20040101
  4. TYSABRI, MONOCLONAL ANTIBODIES [Concomitant]
     Dates: start: 20060101
  5. ZANTIC [Concomitant]
     Dosage: 150 MG, UNK
     Dates: start: 20040101
  6. OTHER CHEMOTHERAPEUTICS [Suspect]
     Dates: start: 20050101, end: 20050101

REACTIONS (19)
  - ALANINE AMINOTRANSFERASE INCREASED [None]
  - ASPARTATE AMINOTRANSFERASE INCREASED [None]
  - BACK INJURY [None]
  - BLADDER SPASM [None]
  - BLOOD GLUCOSE INCREASED [None]
  - CEREBROSCLEROSIS [None]
  - DIABETES MELLITUS NON-INSULIN-DEPENDENT [None]
  - FALL [None]
  - GAMMA-GLUTAMYLTRANSFERASE INCREASED [None]
  - GASTROINTESTINAL DISORDER [None]
  - HYPOAESTHESIA [None]
  - INTERVERTEBRAL DISC PROTRUSION [None]
  - MULTIPLE SCLEROSIS [None]
  - MUSCULAR WEAKNESS [None]
  - OEDEMA PERIPHERAL [None]
  - PARAESTHESIA [None]
  - SPINAL OSTEOARTHRITIS [None]
  - TOOTH INFECTION [None]
  - URINARY INCONTINENCE [None]
